FAERS Safety Report 17077257 (Version 1)
Quarter: 2019Q4

REPORT INFORMATION
  Report Type: Spontaneous
  Country: NL (occurrence: NL)
  Receive Date: 20191126
  Receipt Date: 20191126
  Transmission Date: 20200122
  Serious: Yes (Other)
  Sender: FDA-Public Use
  Company Number: NL-MYLANLABS-2019M1114915

PATIENT
  Sex: Female
  Weight: 82 kg

DRUGS (2)
  1. TRAVATAN [Concomitant]
     Active Substance: TRAVOPROST
     Dosage: 1 GTT DROPS, QD (DAGELIJKS 1 DRUPPEL IN IEDER OOG)
  2. EFUDIX 50 MG/G CREAM [Suspect]
     Active Substance: FLUOROURACIL
     Indication: BASAL CELL CARCINOMA
     Dosage: UNK
     Route: 003
     Dates: start: 2011

REACTIONS (1)
  - Neuropathy peripheral [Recovered/Resolved]
